FAERS Safety Report 4633566-7 (Version None)
Quarter: 2005Q2

REPORT INFORMATION
  Report Type: 
  Country: None (occurrence: None)
  Receive Date: 20050411
  Receipt Date: 20050411
  Transmission Date: 20051028
  Serious: Yes (Hospitalization)
  Sender: FDA-Public Use
  Company Number: None

PATIENT
  Age: 52 Year
  Sex: Female
  Weight: 61.23 kg

DRUGS (6)
  1. FLEET ACCU PREP [Suspect]
     Dosage: 45 ML    X1   ORAL
     Route: 048
     Dates: start: 20050220, end: 20050221
  2. OXYBUTYNIN [Concomitant]
  3. ENALAPRIL [Concomitant]
  4. VERAPAMIL [Concomitant]
  5. ASPIRIN [Concomitant]
  6. NAPROSYN [Concomitant]

REACTIONS (4)
  - CHEST PAIN [None]
  - DYSPEPSIA [None]
  - NAUSEA [None]
  - THERAPEUTIC PRODUCT INEFFECTIVE [None]
